FAERS Safety Report 6646417-6 (Version None)
Quarter: 2010Q1

REPORT INFORMATION
  Report Type: 
  Country: None (occurrence: None)
  Receive Date: 20100323
  Receipt Date: 20100311
  Transmission Date: 20100710
  Serious: Yes (Hospitalization)
  Sender: FDA-Public Use
  Company Number: NL-MEDIMMUNE-MEDI-0010795

PATIENT
  Sex: Female

DRUGS (2)
  1. SYNAGIS [Suspect]
     Route: 030
     Dates: start: 20100111, end: 20100209
  2. SYNAGIS [Suspect]
     Route: 030
     Dates: start: 20100309, end: 20100309

REACTIONS (1)
  - ROTAVIRUS INFECTION [None]
